FAERS Safety Report 5915842-0 (Version None)
Quarter: 2008Q4

REPORT INFORMATION
  Report Type: 
  Country: None (occurrence: None)
  Receive Date: 20081010
  Receipt Date: 20080930
  Transmission Date: 20090506
  Serious: Yes (Death)
  Sender: FDA-Public Use
  Company Number: US-PFIZER INC-2008081900

PATIENT
  Sex: Male

DRUGS (2)
  1. XANAX [Suspect]
  2. SONATA [Suspect]

REACTIONS (2)
  - GUN SHOT WOUND [None]
  - TONGUE DISORDER [None]
